FAERS Safety Report 12341393 (Version 2)
Quarter: 2016Q3

REPORT INFORMATION
  Report Type: Spontaneous
  Country: FR (occurrence: FR)
  Receive Date: 20160506
  Receipt Date: 20160718
  Transmission Date: 20161109
  Serious: Yes (Life-Threatening, Hospitalization)
  Sender: FDA-Public Use
  Company Number: FR-SA-2016SA088526

PATIENT
  Age: 70 Year
  Sex: Female

DRUGS (4)
  1. OFLOCET [Suspect]
     Active Substance: OFLOXACIN
     Dosage: (200 MG,3 IN 1 JOUR(S))
     Route: 048
     Dates: start: 201603, end: 20160425
  2. VANCOMYCIN [Suspect]
     Active Substance: VANCOMYCIN
     Dosage: INTRAVENOUS (INFUSION)
     Route: 042
     Dates: start: 201603, end: 20160422
  3. RIFADINE [Suspect]
     Active Substance: RIFAMPIN
     Route: 048
     Dates: start: 201603, end: 20160425
  4. GENTAMICIN. [Concomitant]
     Active Substance: GENTAMICIN
     Dates: start: 201603

REACTIONS (1)
  - Drug reaction with eosinophilia and systemic symptoms [Recovered/Resolved]

NARRATIVE: CASE EVENT DATE: 20160422
